FAERS Safety Report 26174835 (Version 1)
Quarter: 2025Q4

REPORT INFORMATION
  Report Type: Spontaneous
  Country: TR (occurrence: TR)
  Receive Date: 20251218
  Receipt Date: 20251218
  Transmission Date: 20260118
  Serious: Yes (Other)
  Sender: TEVA
  Company Number: TR-TEVA-VS-3402611

PATIENT
  Age: 26 Year
  Sex: Female

DRUGS (4)
  1. PROGESTERONE [Suspect]
     Active Substance: PROGESTERONE
     Indication: In vitro fertilisation
     Route: 030
  2. LORATADINE [Suspect]
     Active Substance: LORATADINE
     Indication: Drug hypersensitivity
     Route: 065
  3. PREDNISOLONE [Suspect]
     Active Substance: PREDNISOLONE
     Indication: Drug hypersensitivity
     Dosage: DOSE TAPERED
     Route: 065
  4. PREDNISOLONE [Suspect]
     Active Substance: PREDNISOLONE
     Indication: Drug hypersensitivity
     Route: 065

REACTIONS (7)
  - Drug hypersensitivity [Recovered/Resolved]
  - Normal newborn [Unknown]
  - Urticaria [Recovered/Resolved]
  - Skin plaque [Recovered/Resolved]
  - Arthralgia [Recovered/Resolved]
  - Maternal exposure during pregnancy [Unknown]
  - Drug ineffective [Unknown]
